FAERS Safety Report 7397550-5 (Version None)
Quarter: 2011Q2

REPORT INFORMATION
  Report Type: 
  Country: None (occurrence: None)
  Receive Date: 20110406
  Receipt Date: 20110325
  Transmission Date: 20111010
  Serious: Yes (Other)
  Sender: FDA-Public Use
  Company Number: US-JNJFOC-20110312955

PATIENT
  Age: 15 Year
  Sex: Female

DRUGS (2)
  1. ACETAMINOPHEN [Suspect]
  2. ACETAMINOPHEN [Suspect]
     Indication: PRODUCT USED FOR UNKNOWN INDICATION

REACTIONS (7)
  - YELLOW SKIN [None]
  - INTENTIONAL OVERDOSE [None]
  - CONTUSION [None]
  - ABASIA [None]
  - RASH [None]
  - HEADACHE [None]
  - OEDEMA PERIPHERAL [None]
